FAERS Safety Report 20721871 (Version 1)
Quarter: 2022Q2

REPORT INFORMATION
  Report Type: Spontaneous
  Country: US (occurrence: US)
  Receive Date: 20220418
  Receipt Date: 20220418
  Transmission Date: 20220721
  Serious: No
  Sender: FDA-Public Use
  Company Number: US-PFIZER INC-202100955871

PATIENT
  Age: 69 Year
  Sex: Female
  Weight: 67.574 kg

DRUGS (10)
  1. ATORVASTATIN CALCIUM [Suspect]
     Active Substance: ATORVASTATIN CALCIUM
     Dosage: UNK
  2. AMBIEN [Suspect]
     Active Substance: ZOLPIDEM TARTRATE
     Dosage: UNK
  3. BACTRIM [Suspect]
     Active Substance: SULFAMETHOXAZOLE\TRIMETHOPRIM
     Dosage: UNK
  4. BIAXIN [Suspect]
     Active Substance: CLARITHROMYCIN
     Dosage: UNK
  5. DICLOFENAC [Suspect]
     Active Substance: DICLOFENAC
     Dosage: UNK
  6. LOVASTATIN [Suspect]
     Active Substance: LOVASTATIN
     Dosage: UNK
  7. PRAVACHOL [Suspect]
     Active Substance: PRAVASTATIN SODIUM
     Dosage: UNK
  8. TRAMADOL [Suspect]
     Active Substance: TRAMADOL
     Dosage: UNK
  9. ADENOSINE [Suspect]
     Active Substance: ADENOSINE
     Dosage: UNK
  10. ZETIA [Suspect]
     Active Substance: EZETIMIBE
     Dosage: UNK

REACTIONS (1)
  - Drug hypersensitivity [Unknown]
